FAERS Safety Report 9066294 (Version 1)
Quarter: 2013Q1

REPORT INFORMATION
  Report Type: Spontaneous
  Country: US (occurrence: US)
  Receive Date: 20130129
  Receipt Date: 20130129
  Transmission Date: 20140127
  Serious: No
  Sender: FDA-Public Use
  Company Number: US-ABBOTT-12P-163-0951789-00

PATIENT
  Sex: Female
  Weight: 79.45 kg

DRUGS (3)
  1. HUMIRA 40 MG/ 0.8 ML PRE-FILLED SYRINGE [Suspect]
     Indication: CROHN^S DISEASE
     Dates: start: 201112
  2. HUMIRA 40 MG/ 0.8 ML PRE-FILLED SYRINGE [Suspect]
     Indication: PSORIASIS
  3. UNKNOWN BLOOD THINNERS [Concomitant]
     Indication: THROMBOSIS

REACTIONS (3)
  - Incorrect dose administered [Recovered/Resolved]
  - Injection site haemorrhage [Recovering/Resolving]
  - Wrong technique in drug usage process [Recovered/Resolved]
